FAERS Safety Report 23104491 (Version 1)
Quarter: 2023Q4

REPORT INFORMATION
  Report Type: Spontaneous
  Country: US (occurrence: None)
  Receive Date: 20231025
  Receipt Date: 20231025
  Transmission Date: 20240110
  Serious: No
  Sender: FDA-Public Use
  Company Number: US-ENDO-CASE-0034139

PATIENT
  Sex: Female

DRUGS (3)
  1. PERCOCET [Suspect]
     Active Substance: ACETAMINOPHEN\OXYCODONE HYDROCHLORIDE
  2. ONDANSETRON [Suspect]
     Active Substance: ONDANSETRON
  3. MELOXICAM [Suspect]
     Active Substance: MELOXICAM

REACTIONS (1)
  - Nausea [Unknown]
